FAERS Safety Report 20542946 (Version 4)
Quarter: 2022Q2

REPORT INFORMATION
  Report Type: Report from Study
  Country: US (occurrence: US)
  Receive Date: 20220302
  Receipt Date: 20220404
  Transmission Date: 20220720
  Serious: Yes (Other)
  Sender: FDA-Public Use
  Company Number: US-ORGANON-O2203USA000126

PATIENT
  Age: 22 Year
  Sex: Female
  Weight: 104.31 kg

DRUGS (2)
  1. IMPLANON [Suspect]
     Active Substance: ETONOGESTREL
     Dosage: 1 ROD OF 68 MG, LEFT UPPER ARM
     Route: 059
     Dates: start: 20220209, end: 20220216
  2. ERRIN [NORETHISTERONE] [Concomitant]
     Indication: Contraception
     Dosage: UNK
     Route: 048

REACTIONS (3)
  - Device expulsion [Recovered/Resolved]
  - Device difficult to use [Recovered/Resolved]
  - No adverse event [Unknown]

NARRATIVE: CASE EVENT DATE: 20220209
